FAERS Safety Report 9351098 (Version 2)
Quarter: 2014Q1

REPORT INFORMATION
  Report Type: Spontaneous
  Country: US (occurrence: US)
  Receive Date: 20130617
  Receipt Date: 20140107
  Transmission Date: 20141002
  Serious: Yes (Hospitalization, Other)
  Sender: FDA-Public Use
  Company Number: US-BAYER-2013-072627

PATIENT
  Age: 22 Year
  Sex: Female

DRUGS (1)
  1. MIRENA [Suspect]
     Indication: CONTRACEPTION
     Dosage: 20 MCG/24HR, CONT
     Route: 015
     Dates: start: 2008, end: 2008

REACTIONS (6)
  - Polycystic ovaries [None]
  - Appendix disorder [None]
  - Pelvic inflammatory disease [None]
  - Uterine fibrosis [None]
  - Pain [None]
  - Injury [None]
